FAERS Safety Report 20799670 (Version 1)
Quarter: 2022Q2

REPORT INFORMATION
  Report Type: Spontaneous
  Country: JP (occurrence: JP)
  Receive Date: 20220509
  Receipt Date: 20220509
  Transmission Date: 20220721
  Serious: Yes (Other)
  Sender: FDA-Public Use
  Company Number: JP-SUN PHARMACEUTICAL INDUSTRIES LTD-2022RR-335826

PATIENT
  Age: 67 Year
  Sex: Male

DRUGS (6)
  1. OXALIPLATIN [Suspect]
     Active Substance: OXALIPLATIN
     Indication: Metastatic gastric cancer
     Dosage: 100 MILLIGRAM PER MILLILITRE, 1 DOSE/3 WEEKS, ON DAY 1
     Route: 042
  2. IRINOTECAN [Suspect]
     Active Substance: IRINOTECAN
     Indication: Chemotherapy
     Dosage: 150 MILLIGRAM/SQ. METER, 1DOSE/2 WEEKS, ON DAY 1
     Route: 042
  3. PACLITAXEL [Suspect]
     Active Substance: PACLITAXEL
     Indication: Metastatic gastric cancer
     Dosage: 80 MILLIGRAM/KILOGRAM, MONTHLY, ON DAYS 1, 8 AND 15
     Route: 042
  4. TRASTUZUMAB [Suspect]
     Active Substance: TRASTUZUMAB
     Indication: Metastatic gastric cancer
     Dosage: 6 MILLIGRAM/KILOGRAM, 1 DOSE/3 WEEKS, ON DAY 1
     Route: 042
  5. RAMUCIRUMAB [Suspect]
     Active Substance: RAMUCIRUMAB
     Indication: Metastatic gastric cancer
     Dosage: 8 MILLIGRAM/KILOGRAM, MONTHLY, ON DAYS 1 AND 15
     Route: 042
  6. TS-1 [Suspect]
     Active Substance: GIMERACIL\OTERACIL\TEGAFUR
     Indication: Metastatic gastric cancer
     Dosage: 80 MILLIGRAM/SQ. METER, 1 DOSE/3 WEEKS, ON DAYS 1-14
     Route: 048

REACTIONS (2)
  - Disease progression [Unknown]
  - Therapeutic product effect incomplete [Unknown]
